FAERS Safety Report 7873272-9 (Version None)
Quarter: 2011Q3

REPORT INFORMATION
  Report Type: 
  Country: None (occurrence: None)
  Receive Date: 20110927
  Receipt Date: 20101008
  Transmission Date: 20111222
  Serious: Yes (Other)
  Sender: FDA-Public Use
  Company Number: WAES 1010USA01026

PATIENT
  Age: 61 Year
  Sex: Female

DRUGS (4)
  1. VYTORIN [Suspect]
     Indication: BLOOD CHOLESTEROL INCREASED
     Dosage: 10/20MG/DAILY/PO
     Route: 048
     Dates: start: 20090814
  2. POTASSIUM (UNSPECIFIED) [Concomitant]
  3. VYTORIN [Suspect]
     Indication: BLOOD CHOLESTEROL INCREASED
     Dosage: 10-40 MG/PO
     Route: 048
     Dates: start: 20091001, end: 20100924
  4. SYNTHROID [Concomitant]

REACTIONS (17)
  - CHOLELITHIASIS [None]
  - DEPRESSION [None]
  - INSOMNIA [None]
  - PARAESTHESIA [None]
  - ELECTROLYTE IMBALANCE [None]
  - LIVER INJURY [None]
  - ARTHRALGIA [None]
  - RASH [None]
  - NAUSEA [None]
  - CONFUSIONAL STATE [None]
  - NERVOUSNESS [None]
  - RENAL INJURY [None]
  - DIZZINESS [None]
  - CRYING [None]
  - MUSCULAR WEAKNESS [None]
  - MALAISE [None]
  - AMNESIA [None]
